FAERS Safety Report 8447884-8 (Version None)
Quarter: 2012Q2

REPORT INFORMATION
  Report Type: 
  Country: None (occurrence: None)
  Receive Date: 20120612
  Receipt Date: 20120529
  Transmission Date: 20120825
  Serious: Yes (Hospitalization)
  Sender: FDA-Public Use
  Company Number: UTC-019380

PATIENT
  Age: 52 Year
  Sex: Female

DRUGS (2)
  1. TRACLEER [Concomitant]
  2. REMODULIN [Suspect]
     Indication: PULMONARY HYPERTENSION
     Dosage: 54 UG/KG (0.0375 UG/KG, 1 IN 1 MIN), SUBCUTANEOUS
     Route: 058
     Dates: start: 20080730

REACTIONS (6)
  - SYNCOPE [None]
  - NAUSEA [None]
  - HEADACHE [None]
  - VOMITING [None]
  - DYSPNOEA [None]
  - INFUSION SITE INFLAMMATION [None]
